FAERS Safety Report 4676635-8 (Version None)
Quarter: 2005Q2

REPORT INFORMATION
  Report Type: 
  Country: None (occurrence: None)
  Receive Date: 20050527
  Receipt Date: 20050407
  Transmission Date: 20051028
  Serious: Yes (Other)
  Sender: FDA-Public Use
  Company Number: GB-BRISTOL-MYERS SQUIBB COMPANY-12932901

PATIENT
  Age: 84 Year
  Sex: Male
  Weight: 82 kg

DRUGS (3)
  1. APROVEL [Suspect]
     Indication: HYPERTENSION
     Route: 048
     Dates: start: 20050113, end: 20050321
  2. INDAPAMIDE [Concomitant]
     Indication: HYPERTENSION
     Dosage: ^FOR YEARS^
     Route: 048
  3. IBROPROFEN [Concomitant]
     Indication: OSTEOARTHRITIS
     Route: 048

REACTIONS (2)
  - DERMATITIS EXFOLIATIVE [None]
  - GROIN INFECTION [None]
